FAERS Safety Report 5485596-3 (Version None)
Quarter: 2007Q4

REPORT INFORMATION
  Report Type: 
  Country: None (occurrence: None)
  Receive Date: 20071011
  Receipt Date: 20071004
  Transmission Date: 20080405
  Serious: Yes (Life-Threatening, Hospitalization)
  Sender: FDA-Public Use
  Company Number: 150001L07CAN

PATIENT
  Age: 28 Year
  Sex: Female

DRUGS (3)
  1. OVIDREL [Suspect]
  2. GONAL-F [Suspect]
     Dosage: SUBCUTANEOUS INTRAMUSCULAR
     Route: 058
  3. LEUPROLIDE ACETATE [Concomitant]

REACTIONS (12)
  - BLOOD POTASSIUM INCREASED [None]
  - BRAIN OEDEMA [None]
  - CEREBRAL ISCHAEMIA [None]
  - DEHYDRATION [None]
  - HAEMATOCRIT INCREASED [None]
  - HAEMOCONCENTRATION [None]
  - HAEMOGLOBIN INCREASED [None]
  - HEPATIC ENZYME INCREASED [None]
  - INTRACRANIAL PRESSURE INCREASED [None]
  - INTRACRANIAL VENOUS SINUS THROMBOSIS [None]
  - OVARIAN HYPERSTIMULATION SYNDROME [None]
  - WHITE BLOOD CELL COUNT INCREASED [None]
